FAERS Safety Report 7916455-1 (Version None)
Quarter: 2011Q4

REPORT INFORMATION
  Report Type: 
  Country: None (occurrence: None)
  Receive Date: 20111114
  Receipt Date: 20111027
  Transmission Date: 20120403
  Serious: Yes (Other)
  Sender: FDA-Public Use
  Company Number: AUR-APU-2011-05581

PATIENT
  Sex: Male

DRUGS (7)
  1. LOVASTATIN [Suspect]
  2. AMLODIPINE [Concomitant]
  3. LISINOPRIL [Concomitant]
  4. METOPROLOL TARTRATE [Concomitant]
  5. HYDROCHLOROTHIAZIDE [Concomitant]
  6. MIRTAZAPINE [Suspect]
     Indication: WEIGHT INCREASED
     Dosage: 1 DOSAGE FORMS (1 DOSAGE FORMS, 1 IN 1 D),ORAL
     Route: 048
  7. PLAVIX [Concomitant]

REACTIONS (3)
  - SPEECH DISORDER [None]
  - DRY MOUTH [None]
  - TONGUE DRY [None]
